FAERS Safety Report 16910009 (Version 1)
Quarter: 2019Q4

REPORT INFORMATION
  Report Type: Spontaneous
  Country: US (occurrence: US)
  Receive Date: 20191011
  Receipt Date: 20191011
  Transmission Date: 20200122
  Serious: Yes (Other)
  Sender: FDA-Public Use
  Company Number: US-BAUSCH-BL-2019-056602

PATIENT
  Age: 9 Year
  Sex: Male

DRUGS (9)
  1. PREDNISONE. [Suspect]
     Active Substance: PREDNISONE
     Indication: ACUTE LYMPHOCYTIC LEUKAEMIA
     Dosage: PULSES
     Route: 065
     Dates: start: 201507
  2. PEG-ASPARGINASE [Suspect]
     Active Substance: PEGASPARGASE
     Indication: ACUTE LYMPHOCYTIC LEUKAEMIA
     Route: 065
     Dates: start: 2014
  3. VINCRISTINE [Suspect]
     Active Substance: VINCRISTINE
     Route: 065
     Dates: start: 201507
  4. METHOTREXATE. [Suspect]
     Active Substance: METHOTREXATE
     Indication: ACUTE LYMPHOCYTIC LEUKAEMIA
     Route: 065
     Dates: start: 201507
  5. MERCAPTOPURINE. [Suspect]
     Active Substance: MERCAPTOPURINE
     Indication: ACUTE LYMPHOCYTIC LEUKAEMIA
     Dosage: DAILY
     Route: 065
     Dates: start: 201507
  6. DEXAMETHASONE. [Suspect]
     Active Substance: DEXAMETHASONE
     Indication: ACUTE LYMPHOCYTIC LEUKAEMIA
     Route: 065
     Dates: start: 2014
  7. METHOTREXATE. [Suspect]
     Active Substance: METHOTREXATE
     Dosage: HIGH DOSE METHOTREXATE
     Route: 065
     Dates: start: 2014
  8. VINCRISTINE [Suspect]
     Active Substance: VINCRISTINE
     Indication: ACUTE LYMPHOCYTIC LEUKAEMIA
     Route: 065
     Dates: start: 2014
  9. METHOTREXATE. [Suspect]
     Active Substance: METHOTREXATE
     Dosage: CAPIZZI METHOTREXATE
     Route: 065
     Dates: start: 2014

REACTIONS (1)
  - Epstein-Barr virus associated lymphoproliferative disorder [Recovered/Resolved]
